FAERS Safety Report 15454163 (Version 1)
Quarter: 2018Q4

REPORT INFORMATION
  Report Type: Spontaneous
  Country: US (occurrence: US)
  Receive Date: 20181002
  Receipt Date: 20181002
  Transmission Date: 20190204
  Serious: Yes (Other)
  Sender: FDA-Public Use
  Company Number: US-ROCHE-2192717

PATIENT
  Sex: Male

DRUGS (1)
  1. VALCYTE [Suspect]
     Active Substance: VALGANCICLOVIR HYDROCHLORIDE
     Indication: HEART TRANSPLANT
     Dosage: 6 MONTHS; DISCONTINUED
     Route: 065

REACTIONS (1)
  - Cytomegalovirus infection [Not Recovered/Not Resolved]
